FAERS Safety Report 6275760-8 (Version None)
Quarter: 2009Q3

REPORT INFORMATION
  Report Type: 
  Country: None (occurrence: None)
  Receive Date: 20090721
  Receipt Date: 20090716
  Transmission Date: 20100115
  Serious: Yes (Other)
  Sender: FDA-Public Use
  Company Number: US-SANOFI-SYNTHELABO-A03200900838

PATIENT
  Age: 85 Year
  Sex: Male

DRUGS (1)
  1. PLAVIX [Suspect]
     Indication: POOR PERIPHERAL CIRCULATION
     Route: 048
     Dates: start: 20080101

REACTIONS (2)
  - RETINAL VEIN THROMBOSIS [None]
  - VISION BLURRED [None]
